FAERS Safety Report 19086769 (Version 3)
Quarter: 2021Q2

REPORT INFORMATION
  Report Type: Report from Study
  Country: US (occurrence: US)
  Receive Date: 20210402
  Receipt Date: 20210514
  Transmission Date: 20210717
  Serious: Yes (Death, Other)
  Sender: FDA-Public Use
  Company Number: NVSC2021US075122

PATIENT
  Age: 49 Year
  Sex: Male
  Weight: 117.93 kg

DRUGS (17)
  1. KENALOG [Concomitant]
     Active Substance: TRIAMCINOLONE ACETONIDE
     Indication: PSORIASIS
     Dosage: UNK, BID (APPLIED TO AFFECTED AREAS OF SCALP AND LEGS AS NEEDED) (LOTION)
     Route: 065
     Dates: start: 20171220
  2. VALTREX [Concomitant]
     Active Substance: VALACYCLOVIR HYDROCHLORIDE
     Indication: INFECTION
     Dosage: 1 DF, BID (AT FIRST SIGHT OF INFECTION. TAKE FOR 5 DAYS)
     Route: 048
     Dates: start: 20191218
  3. DIPROSONE [Concomitant]
     Active Substance: BETAMETHASONE DIPROPIONATE
     Indication: PSORIASIS
     Dosage: UNK, QD (APPLY TO AFFECTED AREAS OF SCALP DAILY AS NEEDED)
     Route: 065
     Dates: start: 20180709
  4. TOPROL XL [Concomitant]
     Active Substance: METOPROLOL SUCCINATE
     Indication: PRODUCT USED FOR UNKNOWN INDICATION
     Dosage: 1.5 DF, Q24H (EVERY EVENING)
     Route: 048
     Dates: start: 20201014
  5. ASPIRIN. [Concomitant]
     Active Substance: ASPIRIN
     Indication: PRODUCT USED FOR UNKNOWN INDICATION
     Dosage: 1 DF, QD (TAKE WITH FOOD) (EC TABLET)
     Route: 048
     Dates: start: 20191024
  6. KEFLEX [Concomitant]
     Active Substance: CEPHALEXIN
     Indication: PRODUCT USED FOR UNKNOWN INDICATION
     Dosage: 500 MG, QID
     Route: 048
     Dates: start: 20210218
  7. COZAAR [Concomitant]
     Active Substance: LOSARTAN POTASSIUM
     Indication: PRODUCT USED FOR UNKNOWN INDICATION
     Dosage: 0.5 DF, QD
     Route: 048
     Dates: start: 20210208
  8. ENTRESTO [Suspect]
     Active Substance: SACUBITRIL\VALSARTAN
     Indication: PRODUCT USED FOR UNKNOWN INDICATION
     Dosage: 1 DF, BID
     Route: 048
     Dates: start: 20210223
  9. TYLENOL [Concomitant]
     Active Substance: ACETAMINOPHEN
     Indication: PAIN
     Dosage: 2 DF, Q4H (AS NEEDED)
     Route: 048
     Dates: start: 20191024
  10. COSENTYX [Suspect]
     Active Substance: SECUKINUMAB
     Indication: PSORIASIS
     Dosage: 300 MG, QMO (EVERY 4 WEEKS) (REFRIGIRATE, ALLOW 15 TO 30 MINUTES AT ROOM PRIOR TO ADMINISTRATION)
     Route: 058
     Dates: start: 201701, end: 202103
  11. LASIX [Concomitant]
     Active Substance: FUROSEMIDE
     Indication: FLUID RETENTION
     Dosage: 1 DF, QD (AS NEEDED)
     Route: 048
     Dates: start: 20201001
  12. MELATONIN [Concomitant]
     Active Substance: MELATONIN
     Indication: INSOMNIA
     Dosage: 1 DF, QN (BEDTIME AS NEEDED, CAN TAKE UPTO 6 MG PER NIGHT)
     Route: 048
     Dates: start: 20191024
  13. KLOR?CON M20 [Concomitant]
     Active Substance: POTASSIUM CHLORIDE
     Indication: PRODUCT USED FOR UNKNOWN INDICATION
     Dosage: 1 DF, QD (AS NEEDED. TAKE 1 POTASSIUM FOR EVERY 2 FUROSEMIDE PILLS. TAKE WITH FOOD TO AVOID STOMACH
     Route: 048
     Dates: start: 20210223
  14. TEMOVATE [Concomitant]
     Active Substance: CLOBETASOL PROPIONATE
     Indication: PSORIASIS
     Dosage: UNK, QD (APPLY TO SCALP DAILY AS NEEDED) (EXTERNAL SOLUTION)
     Route: 065
     Dates: start: 20190109
  15. ZETIA [Concomitant]
     Active Substance: EZETIMIBE
     Indication: PRODUCT USED FOR UNKNOWN INDICATION
     Dosage: 1 DF, QD
     Route: 048
     Dates: start: 20200315
  16. LIPITOR [Concomitant]
     Active Substance: ATORVASTATIN CALCIUM
     Indication: PRODUCT USED FOR UNKNOWN INDICATION
     Dosage: 1 DF, QD (BED TIME)
     Route: 048
     Dates: start: 20201109
  17. KENALOG [Concomitant]
     Active Substance: TRIAMCINOLONE ACETONIDE
     Dosage: UNK, BID (APPLIED TO AFFECTED AREAS)
     Route: 065
     Dates: start: 20201218

REACTIONS (4)
  - Chest pain [Fatal]
  - Acute myocardial infarction [Fatal]
  - Dyspnoea [Fatal]
  - Arrhythmia [Unknown]

NARRATIVE: CASE EVENT DATE: 20210307
